FAERS Safety Report 20054005 (Version 1)
Quarter: 2021Q4

REPORT INFORMATION
  Report Type: Spontaneous
  Country: US (occurrence: US)
  Receive Date: 20211110
  Receipt Date: 20211110
  Transmission Date: 20220303
  Serious: No
  Sender: FDA-Public Use
  Company Number: US-PFIZER INC-202100968913

PATIENT
  Age: 48 Year
  Sex: Female
  Weight: 52.16 kg

DRUGS (1)
  1. CHANTIX [Suspect]
     Active Substance: VARENICLINE TARTRATE
     Dosage: 1 MG, 2X/DAY (MORNING AND EVENING)
     Route: 048
     Dates: start: 200603, end: 200607

REACTIONS (9)
  - Recalled product administered [Unknown]
  - Palpitations [Unknown]
  - Atrial flutter [Unknown]
  - Somnolence [Unknown]
  - Nausea [Unknown]
  - Myalgia [Unknown]
  - Product dose omission in error [Unknown]
  - Withdrawal syndrome [Unknown]
  - QRS axis abnormal [Unknown]

NARRATIVE: CASE EVENT DATE: 20060101
